FAERS Safety Report 5059208-7 (Version None)
Quarter: 2006Q3

REPORT INFORMATION
  Report Type: 
  Country: None (occurrence: None)
  Receive Date: 20060718
  Receipt Date: 20060630
  Transmission Date: 20061208
  Serious: Yes (Other)
  Sender: FDA-Public Use
  Company Number: FR200604002835

PATIENT
  Age: 54 Year
  Sex: Female

DRUGS (5)
  1. FORTEO [Suspect]
     Indication: OSTEOPOROSIS
     Dosage: 20 UG, DAILY (1/D), SUBCUTANEOUS
     Route: 058
     Dates: start: 20050419
  2. FORTEO [Concomitant]
  3. LEVOTHYROXINE SODIUM [Concomitant]
  4. FAMALINE [Concomitant]
  5. TRILEPTAL [Concomitant]

REACTIONS (4)
  - ABDOMINAL PAIN UPPER [None]
  - ANAL CANCER [None]
  - BLOOD THYROID STIMULATING HORMONE INCREASED [None]
  - HAEMORRHOIDAL HAEMORRHAGE [None]
